FAERS Safety Report 19011733 (Version 1)
Quarter: 2021Q1

REPORT INFORMATION
  Report Type: Spontaneous
  Country: FR (occurrence: FR)
  Receive Date: 20210316
  Receipt Date: 20210316
  Transmission Date: 20210420
  Serious: Yes (Hospitalization)
  Sender: FDA-Public Use
  Company Number: FR-TEVA-2021-FR-1889335

PATIENT
  Age: 69 Year
  Sex: Female
  Weight: 63.3 kg

DRUGS (1)
  1. RALOXIFENE BASE [Suspect]
     Active Substance: RALOXIFENE
     Indication: OSTEOPOROTIC FRACTURE
     Dosage: 60 MG
     Route: 048
     Dates: start: 20201102, end: 20201120

REACTIONS (2)
  - Hepatocellular injury [Recovered/Resolved]
  - Cholestasis [Recovered/Resolved]

NARRATIVE: CASE EVENT DATE: 20201120
